FAERS Safety Report 20631034 (Version 2)
Quarter: 2024Q2

REPORT INFORMATION
  Report Type: Spontaneous
  Country: CA (occurrence: CA)
  Receive Date: 20220324
  Receipt Date: 20240502
  Transmission Date: 20240715
  Serious: Yes (Other)
  Sender: FDA-Public Use
  Company Number: CA-CELLTRION INC.-2022CA003134

PATIENT

DRUGS (1)
  1. RITUXIMAB [Suspect]
     Active Substance: RITUXIMAB
     Indication: Rheumatoid arthritis
     Dosage: 1000.0 MILLIGRAM
     Route: 042

REACTIONS (5)
  - Memory impairment [Recovering/Resolving]
  - Stenosis [Recovering/Resolving]
  - Weight decreased [Recovering/Resolving]
  - COVID-19 [Recovering/Resolving]
  - Cardiac failure congestive [Recovering/Resolving]
